FAERS Safety Report 8548639-6 (Version None)
Quarter: 2012Q3

REPORT INFORMATION
  Report Type: 
  Country: None (occurrence: None)
  Receive Date: 20120720
  Receipt Date: 20120720
  Transmission Date: 20120928
  Serious: Yes (Other)
  Sender: FDA-Public Use
  Company Number: None

PATIENT
  Sex: Female

DRUGS (5)
  1. BIOTENE [Concomitant]
  2. NASAL SPRAY [Concomitant]
  3. LEVOTHYROXINE SODIUM [Concomitant]
  4. SIMBICORT [Concomitant]
  5. NIASPAN [Suspect]
     Indication: BLOOD CHOLESTEROL INCREASED
     Dosage: 500MG ONCE A DAY PO
     Route: 048
     Dates: start: 20120716, end: 20120719

REACTIONS (3)
  - FLUSHING [None]
  - BURNING SENSATION [None]
  - RASH [None]
